FAERS Safety Report 9885381 (Version 1)
Quarter: 2014Q1

REPORT INFORMATION
  Report Type: Spontaneous
  Country: US (occurrence: US)
  Receive Date: 20140210
  Receipt Date: 20140210
  Transmission Date: 20141002
  Serious: No
  Sender: FDA-Public Use
  Company Number: US-PFIZER INC-2014033239

PATIENT
  Age: 70 Year
  Sex: Female

DRUGS (1)
  1. GABAPENTIN [Suspect]
     Indication: BACK PAIN
     Dosage: 300 MG, 2X/DAY
     Dates: start: 201301

REACTIONS (7)
  - Off label use [Unknown]
  - Somnolence [Unknown]
  - Depressed mood [Unknown]
  - Mood altered [Unknown]
  - Hypoaesthesia [Unknown]
  - Vision blurred [Unknown]
  - Visual impairment [Unknown]
